FAERS Safety Report 15115124 (Version 1)
Quarter: 2018Q3

REPORT INFORMATION
  Report Type: Report from Study
  Country: US (occurrence: US)
  Receive Date: 20180706
  Receipt Date: 20180706
  Transmission Date: 20181010
  Serious: Yes (Hospitalization, Other)
  Sender: FDA-Public Use
  Company Number: US-PFIZER INC-2018240033

PATIENT
  Age: 67 Year
  Sex: Male

DRUGS (1)
  1. SUTENT [Suspect]
     Active Substance: SUNITINIB MALATE
     Indication: RENAL CELL CARCINOMA
     Dosage: 50 MG, 1X/DAY (ONCE DAILY)
     Route: 048
     Dates: start: 20180531, end: 20180607

REACTIONS (5)
  - Urinary tract infection [Unknown]
  - Hypotension [Unknown]
  - Nephrolithiasis [Unknown]
  - Weight decreased [Unknown]
  - Dehydration [Unknown]

NARRATIVE: CASE EVENT DATE: 2018
